FAERS Safety Report 11335588 (Version 3)
Quarter: 2018Q4

REPORT INFORMATION
  Report Type: Report from Study
  Country: GB (occurrence: GB)
  Receive Date: 20150804
  Receipt Date: 20181130
  Transmission Date: 20190204
  Serious: Yes (Hospitalization, Other)
  Sender: FDA-Public Use
  Company Number: GB-JNJFOC-20150314282

PATIENT
  Age: 79 Year
  Sex: Male

DRUGS (12)
  1. LEVOTHYROXINE. [Concomitant]
     Active Substance: LEVOTHYROXINE
  2. AMLODIPINE [Concomitant]
     Active Substance: AMLODIPINE BESYLATE
     Dosage: 2 PER DAY, 5 MG MONE 5 MG EVENING (INCREASED FROM 2.5 MG)
     Route: 065
  3. LANSOPRAZOLE. [Concomitant]
     Active Substance: LANSOPRAZOLE
  4. ACYCLOVIR. [Concomitant]
     Active Substance: ACYCLOVIR
  5. IBRUTINIB [Suspect]
     Active Substance: IBRUTINIB
     Indication: CHRONIC LYMPHOCYTIC LEUKAEMIA
     Route: 048
  6. IBRUTINIB [Suspect]
     Active Substance: IBRUTINIB
     Indication: CHRONIC LYMPHOCYTIC LEUKAEMIA
     Dosage: REPORTED TO HAVE BEEN ON 420 MG DAILY (12 MONTHS) COMMENCED 08-APR-2014
     Route: 048
     Dates: start: 20140408, end: 201503
  7. METOPROLOL. [Concomitant]
     Active Substance: METOPROLOL
  8. AMIODARONE [Concomitant]
     Active Substance: AMIODARONE
     Dosage: 1 X 5 MG AND 1 X 2.5 MG
  9. ZOLPIDEM [Concomitant]
     Active Substance: ZOLPIDEM\ZOLPIDEM TARTRATE
     Route: 065
  10. IRBESARTAN. [Concomitant]
     Active Substance: IRBESARTAN
  11. COTRIMOXAZOLE [Concomitant]
     Active Substance: SULFAMETHOXAZOLE\TRIMETHOPRIM
  12. ROSUVASTATIN. [Concomitant]
     Active Substance: ROSUVASTATIN

REACTIONS (10)
  - Pneumonia [Recovered/Resolved]
  - Dermatitis psoriasiform [Recovered/Resolved]
  - Iron deficiency anaemia [Unknown]
  - Sinus arrhythmia [Unknown]
  - Penile ulceration [Unknown]
  - Haemoptysis [Recovered/Resolved]
  - Atrial fibrillation [Not Recovered/Not Resolved]
  - Neuropathy peripheral [Not Recovered/Not Resolved]
  - Keratitis [Unknown]
  - Lower respiratory tract infection [Recovered/Resolved]

NARRATIVE: CASE EVENT DATE: 201507
